FAERS Safety Report 12044930 (Version 3)
Quarter: 2016Q1

REPORT INFORMATION
  Report Type: Spontaneous
  Country: JP (occurrence: JP)
  Receive Date: 20160208
  Receipt Date: 20160329
  Transmission Date: 20160526
  Serious: No
  Sender: FDA-Public Use
  Company Number: JP-UCBSA-2016003219

PATIENT
  Age: 8 Year
  Sex: Female

DRUGS (7)
  1. KEPPRA [Suspect]
     Active Substance: LEVETIRACETAM
     Indication: EPILEPSY
     Dosage: 95 MG, 2X/DAY (BID)
     Route: 048
     Dates: start: 20160124, end: 20160125
  2. DORMICUM [Suspect]
     Active Substance: MIDAZOLAM\MIDAZOLAM HYDROCHLORIDE
     Indication: PRODUCT USED FOR UNKNOWN INDICATION
     Dosage: 10.6MG DAILY
     Route: 042
     Dates: start: 20160124, end: 20160124
  3. ACICLOVIN [Concomitant]
     Active Substance: ACYCLOVIR
     Indication: PRODUCT USED FOR UNKNOWN INDICATION
     Dosage: UNK
     Route: 041
     Dates: start: 20160124, end: 20160127
  4. CERCINE [Suspect]
     Active Substance: DIAZEPAM
     Indication: PRODUCT USED FOR UNKNOWN INDICATION
     Dosage: 20MG DAILY
     Route: 042
     Dates: start: 20160124, end: 20160124
  5. CEFOTAXIME [Concomitant]
     Active Substance: CEFOTAXIME SODIUM
     Indication: PRODUCT USED FOR UNKNOWN INDICATION
     Dosage: UNK
     Route: 041
     Dates: start: 20160124, end: 20160128
  6. KEPPRA [Suspect]
     Active Substance: LEVETIRACETAM
     Dosage: 190 MG, 2X/DAY (BID)
     Route: 048
     Dates: start: 20160125, end: 20160127
  7. EXCEGRAN [Concomitant]
     Active Substance: ZONISAMIDE
     Indication: PRODUCT USED FOR UNKNOWN INDICATION
     Dosage: UNK
     Route: 048
     Dates: start: 20150805

REACTIONS (2)
  - Circadian rhythm sleep disorder [Unknown]
  - Blepharospasm [Recovered/Resolved]

NARRATIVE: CASE EVENT DATE: 2016
